FAERS Safety Report 8558045-6 (Version None)
Quarter: 2012Q3

REPORT INFORMATION
  Report Type: 
  Country: None (occurrence: None)
  Receive Date: 20120801
  Receipt Date: 20120724
  Transmission Date: 20120928
  Serious: Yes (Hospitalization)
  Sender: FDA-Public Use
  Company Number: CA-ABBOTT-12P-028-0953204-00

PATIENT
  Sex: Male
  Weight: 105 kg

DRUGS (1)
  1. HUMIRA [Suspect]
     Indication: PSORIASIS
     Route: 058
     Dates: end: 20120509

REACTIONS (8)
  - UNEVALUABLE EVENT [None]
  - IMMUNOSUPPRESSION [None]
  - BACK PAIN [None]
  - GAIT DISTURBANCE [None]
  - SYNCOPE [None]
  - ENCEPHALITIS [None]
  - MENINGITIS [None]
  - SINUS HEADACHE [None]
